FAERS Safety Report 9785392 (Version 5)
Quarter: 2014Q1

REPORT INFORMATION
  Report Type: Spontaneous
  Country: BR (occurrence: BR)
  Receive Date: 20131227
  Receipt Date: 20140221
  Transmission Date: 20141002
  Serious: Yes (Other)
  Sender: FDA-Public Use
  Company Number: BR-ALLERGAN-1320006US

PATIENT
  Sex: Female
  Weight: 63 kg

DRUGS (2)
  1. BOTOX [Suspect]
     Indication: PARALYSIS
     Dosage: UNK
     Dates: start: 20131216, end: 20131216
  2. BOTOX [Suspect]
     Dosage: UNK, SINGLE
     Dates: start: 201306, end: 201306

REACTIONS (9)
  - Labyrinthitis [Recovered/Resolved]
  - Face oedema [Recovered/Resolved]
  - Eye oedema [Recovered/Resolved]
  - Dizziness [Recovered/Resolved]
  - Off label use [Unknown]
  - Nausea [Recovered/Resolved]
  - Application site pain [Recovered/Resolved]
  - Pain [Recovered/Resolved]
  - Vomiting [Recovered/Resolved]
